FAERS Safety Report 11779413 (Version 1)
Quarter: 2015Q4

REPORT INFORMATION
  Report Type: Spontaneous
  Country: FR (occurrence: FR)
  Receive Date: 20151125
  Receipt Date: 20151125
  Transmission Date: 20160304
  Serious: Yes (Hospitalization, Other)
  Sender: FDA-Public Use
  Company Number: FR-TEVA-609972ISR

PATIENT
  Age: 48 Year
  Sex: Male

DRUGS (12)
  1. LASILIX FAIBLE 20 MG [Concomitant]
     Active Substance: FUROSEMIDE
     Dosage: 4 DOSAGE FORMS DAILY;
     Route: 042
     Dates: start: 20150605, end: 20150606
  2. METRONIDAZOLE B BRAUN [Concomitant]
     Active Substance: METRONIDAZOLE
     Dosage: 1500 MILLIGRAM DAILY;
     Route: 042
     Dates: start: 20150527, end: 20150608
  3. IFOSFAMIDE EG 40 MG/ML [Suspect]
     Active Substance: IFOSFAMIDE
     Dosage: 10600 MILLIGRAM DAILY; ICE PROTOCOL
     Route: 041
     Dates: start: 20150606, end: 20150606
  4. TAVANIC 500 MG [Concomitant]
     Active Substance: LEVOFLOXACIN
     Dosage: 1000 MILLIGRAM DAILY;
     Route: 048
     Dates: start: 20150529, end: 20150608
  5. CARBOPLATINE KABI 10 MG/ML [Suspect]
     Active Substance: CARBOPLATIN
     Dosage: 800 MILLIGRAM DAILY; EXACT FORM: SOLUTION TO DILUTE FOR INFUSION. ICE PROTOCOL
     Route: 042
     Dates: start: 20150606, end: 20150606
  6. CEFTRIAXONE PANPHARMA [Concomitant]
     Active Substance: CEFTRIAXONE
     Dosage: 1G PER 24 HOURS
     Route: 042
     Dates: end: 20150608
  7. METRONIDAZOLE B BRAUN [Concomitant]
     Active Substance: METRONIDAZOLE
     Dosage: 12715 MILLIGRAM DAILY;
     Route: 042
     Dates: start: 20150605, end: 20150606
  8. ETOPOSIDE TEVA [Suspect]
     Active Substance: ETOPOSIDE
     Dosage: 210 MILLIGRAM DAILY; ICE PROTOCOL
     Route: 042
     Dates: start: 20150605, end: 20150606
  9. UROMITEXAN [Concomitant]
     Active Substance: MESNA
     Dosage: 12175 MILLIGRAM DAILY;
     Route: 042
     Dates: start: 20150606, end: 20150607
  10. EMEND [Concomitant]
     Active Substance: APREPITANT
     Dosage: 125 MILLIGRAM DAILY;
     Route: 048
     Dates: start: 20150605, end: 20150605
  11. EMEND [Concomitant]
     Active Substance: APREPITANT
     Dosage: 80 MILLIGRAM DAILY;
     Route: 048
     Dates: start: 20150606, end: 20150609
  12. CEFTRIAXONE PANPHARMA [Concomitant]
     Active Substance: CEFTRIAXONE
     Dosage: 2G PER 24 HOURS
     Route: 042
     Dates: start: 20150527

REACTIONS (9)
  - Oedema peripheral [Unknown]
  - Purpura fulminans [Unknown]
  - Meningitis meningococcal [Unknown]
  - Septic shock [Unknown]
  - Hypoalbuminaemia [Unknown]
  - Bone marrow failure [Recovered/Resolved]
  - Coma [Unknown]
  - Purpura [Unknown]
  - Encephalopathy [Unknown]

NARRATIVE: CASE EVENT DATE: 20150606
